FAERS Safety Report 8368913-6 (Version None)
Quarter: 2012Q2

REPORT INFORMATION
  Report Type: 
  Country: None (occurrence: None)
  Receive Date: 20120516
  Receipt Date: 20120502
  Transmission Date: 20120825
  Serious: Yes (Hospitalization)
  Sender: FDA-Public Use
  Company Number: USA/USA/12/0024316

PATIENT
  Age: 58 Year
  Sex: Male

DRUGS (4)
  1. AMOXICILLIN W/CLAVULANATE POTASSIUM (AMOXICILLIN W/CLAVULANATE POTASSI [Concomitant]
  2. LEVOFLOXACIN [Suspect]
     Indication: OTITIS MEDIA
     Dosage: 750 MG, 1 IN 1 D
  3. CEFDINIR [Concomitant]
  4. SIMVASTATIN [Suspect]
     Indication: PRODUCT USED FOR UNKNOWN INDICATION
     Dosage: 20 MG, 1 IN 1 D

REACTIONS (7)
  - TENDON DISORDER [None]
  - BONE DISORDER [None]
  - INFLAMMATION [None]
  - WEIGHT DECREASED [None]
  - DRUG INEFFECTIVE [None]
  - ARTHRITIS BACTERIAL [None]
  - OSTEOARTHRITIS [None]
